FAERS Safety Report 6588614-4 (Version None)
Quarter: 2010Q1

REPORT INFORMATION
  Report Type: 
  Country: None (occurrence: None)
  Receive Date: 20100218
  Receipt Date: 20100210
  Transmission Date: 20100710
  Serious: Yes (Other)
  Sender: FDA-Public Use
  Company Number: VE-ROCHE-685605

PATIENT
  Sex: Female
  Weight: 79 kg

DRUGS (2)
  1. XELODA [Suspect]
     Indication: BREAST CANCER
     Route: 048
     Dates: start: 20080422, end: 20100205
  2. FASLODEX [Concomitant]

REACTIONS (1)
  - BLINDNESS UNILATERAL [None]
